FAERS Safety Report 5939423-8 (Version None)
Quarter: 2008Q4

REPORT INFORMATION
  Report Type: 
  Country: None (occurrence: None)
  Receive Date: 20081029
  Receipt Date: 20081016
  Transmission Date: 20090506
  Serious: Yes (Hospitalization)
  Sender: FDA-Public Use
  Company Number: 0277

PATIENT
  Age: 49 Year
  Sex: Female

DRUGS (6)
  1. INDOMETHACIN [Suspect]
     Indication: ANKYLOSING SPONDYLITIS
     Dosage: PO
     Route: 048
     Dates: start: 20080801, end: 20080801
  2. INDOMETHACIN [Suspect]
     Indication: ANKYLOSING SPONDYLITIS
     Dosage: PO
     Route: 048
     Dates: start: 20080906, end: 20080911
  3. TRAMADOL HYDROCHLORIDE [Suspect]
     Indication: ANKYLOSING SPONDYLITIS
     Dosage: 400 MG PO
     Route: 048
     Dates: start: 20080601, end: 20080801
  4. TRAMADOL HYDROCHLORIDE [Suspect]
     Indication: ANKYLOSING SPONDYLITIS
     Dosage: 400 MG PO
     Route: 048
     Dates: start: 20080906, end: 20080914
  5. LEVOTHYROXINE SODIUM [Concomitant]
  6. TETRAZEPAM [Concomitant]

REACTIONS (3)
  - HEADACHE [None]
  - HYPERTHERMIA [None]
  - VOMITING [None]
